FAERS Safety Report 9785189 (Version 2)
Quarter: 2014Q2

REPORT INFORMATION
  Report Type: Spontaneous
  Country: SE (occurrence: SE)
  Receive Date: 20131227
  Receipt Date: 20140606
  Transmission Date: 20141212
  Serious: Yes (Other)
  Sender: FDA-Public Use
  Company Number: SE-ROCHE-1322174

PATIENT
  Age: 46 Year
  Sex: Female

DRUGS (1)
  1. TAMIFLU [Suspect]
     Indication: INFLUENZA
     Route: 048
     Dates: start: 20131028, end: 20131101

REACTIONS (3)
  - Foreign body [Recovered/Resolved]
  - Choking sensation [Recovered/Resolved]
  - Pain [Recovered/Resolved]
